FAERS Safety Report 10250951 (Version 1)
Quarter: 2014Q2

REPORT INFORMATION
  Report Type: Spontaneous
  Country: GB (occurrence: GB)
  Receive Date: 20140620
  Receipt Date: 20140620
  Transmission Date: 20141212
  Serious: Yes (Other)
  Sender: FDA-Public Use
  Company Number: GB-PFIZER INC-2014167328

PATIENT
  Age: 23 Year
  Sex: Male

DRUGS (14)
  1. RAMIPRIL [Suspect]
     Dosage: UNK
     Route: 065
  2. KALYDECO [Suspect]
     Indication: CYSTIC FIBROSIS
     Dosage: 150 MG, 2X/DAY (EVERY 12 HOURS)
     Route: 048
     Dates: start: 201308
  3. ACETYLCYSTEINE [Concomitant]
     Dosage: UNK
  4. CALCICHEW-D3 [Concomitant]
     Dosage: UNK
  5. CREON [Concomitant]
     Dosage: UNK
  6. DORNASE ALFA [Concomitant]
     Dosage: UNK
  7. SALINE MIXTURE [Concomitant]
     Dosage: UNK
  8. METFORMIN [Concomitant]
     Dosage: UNK
  9. OMEPRAZOLE [Concomitant]
     Dosage: UNK
  10. URSODEOXYCHOLIC ACID [Concomitant]
     Dosage: UNK
  11. VITAMIN A [Concomitant]
     Dosage: UNK
  12. VITAMIN D [Concomitant]
     Dosage: UNK
  13. VITAMIN E [Concomitant]
     Dosage: UNK
  14. VITAMIN K [Concomitant]
     Dosage: UNK

REACTIONS (1)
  - Ventricular dysfunction [Not Recovered/Not Resolved]
